FAERS Safety Report 5822733-2 (Version None)
Quarter: 2008Q3

REPORT INFORMATION
  Report Type: 
  Country: None (occurrence: None)
  Receive Date: 20080725
  Receipt Date: 20071015
  Transmission Date: 20090109
  Serious: Yes (Hospitalization)
  Sender: FDA-Public Use
  Company Number: US-AMGEN-US240289

PATIENT
  Sex: Male
  Weight: 73.5 kg

DRUGS (12)
  1. PROCRIT [Suspect]
     Indication: ANAEMIA OF MALIGNANT DISEASE
     Route: 058
     Dates: start: 20020722, end: 20070830
  2. FLUDARA [Concomitant]
     Dates: end: 20070409
  3. CYTOXAN [Concomitant]
     Dates: end: 20070409
  4. RITUXAN [Concomitant]
     Dates: end: 20070409
  5. VALTREX [Concomitant]
  6. MULTI-VITAMINS [Concomitant]
  7. FLOMAX [Concomitant]
  8. VERAPAMIL [Concomitant]
  9. DIFLUCAN [Concomitant]
  10. ALLOPURINOL [Concomitant]
     Dates: start: 20070312, end: 20070618
  11. SULFAMETHOXAZOLE [Concomitant]
     Dates: start: 20070606, end: 20070608
  12. SULFAMETHOXAZOLE AND TRIMETHOPRIM [Concomitant]
     Dates: start: 20070606, end: 20070608

REACTIONS (4)
  - HAEMOGLOBIN DECREASED [None]
  - PYREXIA [None]
  - SERUM FERRITIN INCREASED [None]
  - WHITE BLOOD CELL COUNT DECREASED [None]
